FAERS Safety Report 12238978 (Version 2)
Quarter: 2016Q2

REPORT INFORMATION
  Report Type: Spontaneous
  Country: None (occurrence: PL)
  Receive Date: 20160405
  Receipt Date: 20160426
  Transmission Date: 20160815
  Serious: Yes (Other)
  Sender: FDA-Public Use
  Company Number: PL-ALLERGAN-1652584US

PATIENT
  Age: 35 Year
  Sex: Female

DRUGS (2)
  1. LEVOSERT [Suspect]
     Active Substance: LEVONORGESTREL
     Indication: MENORRHAGIA
     Dosage: 20 ?G, QD
     Route: 015
     Dates: start: 20160223, end: 20160316
  2. LEVOSERT [Suspect]
     Active Substance: LEVONORGESTREL
     Dosage: 20 ?G, QD
     Route: 015

REACTIONS (2)
  - Haemorrhage [Recovered/Resolved]
  - Device expulsion [Recovered/Resolved]

NARRATIVE: CASE EVENT DATE: 20160316
